FAERS Safety Report 20345441 (Version 1)
Quarter: 2022Q1

REPORT INFORMATION
  Report Type: Spontaneous
  Country: US (occurrence: US)
  Receive Date: 20220118
  Receipt Date: 20220118
  Transmission Date: 20220423
  Serious: Yes (Other)
  Sender: FDA-Public Use
  Company Number: US-MYLANLABS-2022M1003104

PATIENT
  Age: 62 Year
  Sex: Male

DRUGS (9)
  1. CLOFARABINE [Suspect]
     Active Substance: CLOFARABINE
     Indication: Chloroma
     Dosage: UNK
     Route: 065
  2. CYTARABINE [Suspect]
     Active Substance: CYTARABINE
     Indication: Chloroma
     Dosage: UNK
     Route: 065
  3. CYCLOPHOSPHAMIDE [Concomitant]
     Active Substance: CYCLOPHOSPHAMIDE
     Indication: T-cell type acute leukaemia
     Dosage: UNK
     Route: 065
  4. DOXORUBICIN HYDROCHLORIDE [Concomitant]
     Active Substance: DOXORUBICIN HYDROCHLORIDE
     Indication: T-cell type acute leukaemia
     Dosage: UNK
     Route: 065
  5. VINCRISTINE [Concomitant]
     Active Substance: VINCRISTINE
     Indication: T-cell type acute leukaemia
     Dosage: UNK
     Route: 065
  6. PREDNISONE [Concomitant]
     Active Substance: PREDNISONE
     Indication: T-cell type acute leukaemia
     Dosage: UNK
     Route: 065
  7. NELARABINE [Concomitant]
     Active Substance: NELARABINE
     Indication: T-cell type acute leukaemia
     Dosage: UNK
     Route: 065
  8. DEXAMETHASONE [Concomitant]
     Active Substance: DEXAMETHASONE
     Indication: T-cell type acute leukaemia
     Dosage: UNK
     Route: 065
  9. ERYTHROPOIETIN [Concomitant]
     Active Substance: ERYTHROPOIETIN
     Indication: Primary myelofibrosis
     Dosage: UNK
     Route: 065

REACTIONS (3)
  - Appendicitis [Unknown]
  - Neutropenic sepsis [Unknown]
  - Escherichia bacteraemia [Unknown]
